FAERS Safety Report 6064362-4 (Version None)
Quarter: 2009Q1

REPORT INFORMATION
  Report Type: 
  Country: None (occurrence: None)
  Receive Date: 20090203
  Receipt Date: 20090203
  Transmission Date: 20090719
  Serious: Yes (Other)
  Sender: FDA-Public Use
  Company Number: None

PATIENT
  Age: 42 Year
  Sex: Male
  Weight: 111.1313 kg

DRUGS (2)
  1. SEROQUEL [Suspect]
     Indication: BIPOLAR DISORDER
     Dosage: 25MGS ONCE PER DAY PO
     Route: 048
     Dates: start: 20040401, end: 20050601
  2. SEROQUEL [Suspect]
     Indication: DEPRESSION
     Dosage: 25MGS ONCE PER DAY PO
     Route: 048
     Dates: start: 20040401, end: 20050601

REACTIONS (9)
  - BACK PAIN [None]
  - CONVULSION [None]
  - MUSCLE RUPTURE [None]
  - MUSCLE TIGHTNESS [None]
  - NIGHTMARE [None]
  - TARDIVE DYSKINESIA [None]
  - TREMOR [None]
  - WEIGHT INCREASED [None]
  - WEIGHT LOSS POOR [None]
